FAERS Safety Report 16472994 (Version 1)
Quarter: 2019Q2

REPORT INFORMATION
  Report Type: Spontaneous
  Country: GB (occurrence: GB)
  Receive Date: 20190625
  Receipt Date: 20190625
  Transmission Date: 20190711
  Serious: Yes (Other)
  Sender: FDA-Public Use
  Company Number: GB-ALKEM LABORATORIES LIMITED-GB-ALKEM-2019-05765

PATIENT
  Age: 71 Year
  Sex: Male

DRUGS (1)
  1. CEFUROXIME AXETIL. [Suspect]
     Active Substance: CEFUROXIME AXETIL
     Indication: PRODUCT USED FOR UNKNOWN INDICATION
     Dosage: 12.5 MG/0.1 ML

REACTIONS (6)
  - Anterior chamber inflammation [Recovering/Resolving]
  - Incorrect dose administered [Unknown]
  - Vitritis [Recovering/Resolving]
  - Product preparation issue [Unknown]
  - Uveitis [Recovering/Resolving]
  - Retinoschisis [Not Recovered/Not Resolved]
